FAERS Safety Report 14152676 (Version 1)
Quarter: 2017Q4

REPORT INFORMATION
  Report Type: Report from Study
  Country: US (occurrence: US)
  Receive Date: 20171102
  Receipt Date: 20171102
  Transmission Date: 20180321
  Serious: Yes (Other)
  Sender: FDA-Public Use
  Company Number: US-PFIZER INC-2017456149

PATIENT
  Sex: Female

DRUGS (2)
  1. IBRANCE [Suspect]
     Active Substance: PALBOCICLIB
     Dosage: 75 MG, DAILY
     Route: 048
     Dates: start: 20171012
  2. IBRANCE [Suspect]
     Active Substance: PALBOCICLIB
     Indication: BREAST CANCER
     Dosage: UNK UNK, DAILY (100 MG/75 MG)
     Route: 048
     Dates: start: 201602, end: 20171011

REACTIONS (2)
  - Bone marrow failure [Unknown]
  - Fatigue [Unknown]

NARRATIVE: CASE EVENT DATE: 201710
